FAERS Safety Report 8377476-0 (Version None)
Quarter: 2012Q2

REPORT INFORMATION
  Report Type: 
  Country: None (occurrence: None)
  Receive Date: 20120522
  Receipt Date: 20110323
  Transmission Date: 20120825
  Serious: No
  Sender: FDA-Public Use
  Company Number: US-ASTRAZENECA-2009SE25908

PATIENT
  Age: 64 Year
  Sex: Female
  Weight: 65.8 kg

DRUGS (8)
  1. PRILOSEC [Suspect]
     Route: 048
  2. PRILOSEC [Suspect]
     Indication: GASTROOESOPHAGEAL REFLUX DISEASE
     Route: 048
     Dates: start: 20040101
  3. SYNTHROID [Concomitant]
  4. ESTROGEN CREAM [Concomitant]
  5. VITAMIN TAB [Concomitant]
  6. RESTORIL [Concomitant]
  7. PRILOSEC [Suspect]
     Route: 048
  8. LIPITOR [Concomitant]

REACTIONS (12)
  - ABDOMINAL PAIN UPPER [None]
  - CONSTIPATION [None]
  - GASTROOESOPHAGEAL REFLUX DISEASE [None]
  - TONGUE COATED [None]
  - NAUSEA [None]
  - DYSPEPSIA [None]
  - THROAT TIGHTNESS [None]
  - DRY EYE [None]
  - CHEST DISCOMFORT [None]
  - FLATULENCE [None]
  - MALAISE [None]
  - DRUG INEFFECTIVE [None]
